FAERS Safety Report 8982023 (Version 1)
Quarter: 2012Q4

REPORT INFORMATION
  Report Type: 
  Country: US (occurrence: US)
  Receive Date: 20121212
  Receipt Date: 20121212
  Transmission Date: 20130627
  Serious: Yes (Death, Other)
  Sender: FDA-Public Use
  Company Number: US-ASTELLAS-1120519

PATIENT
  Sex: Female

DRUGS (1)
  1. TARCEVA [Suspect]
     Indication: LUNG NEOPLASM MALIGNANT
     Route: 065

REACTIONS (7)
  - Death [Fatal]
  - Blindness unilateral [Unknown]
  - Balance disorder [Unknown]
  - Photopsia [Unknown]
  - Ear congestion [Unknown]
  - Tinnitus [Unknown]
  - Pain [Unknown]
